FAERS Safety Report 24834027 (Version 1)
Quarter: 2025Q1

REPORT INFORMATION
  Report Type: Spontaneous
  Country: US (occurrence: US)
  Receive Date: 20250112
  Receipt Date: 20250112
  Transmission Date: 20250408
  Serious: Yes (Other)
  Sender: JOHNSON AND JOHNSON
  Company Number: US-JNJFOC-20250107751

PATIENT
  Age: 58 Year
  Sex: Female
  Weight: 37.6 kg

DRUGS (1)
  1. TALQUETAMAB [Suspect]
     Active Substance: TALQUETAMAB
     Indication: Plasma cell myeloma
     Route: 058
     Dates: start: 20240416, end: 20240808

REACTIONS (2)
  - Weight decreased [Recovered/Resolved with Sequelae]
  - Dysgeusia [Unknown]

NARRATIVE: CASE EVENT DATE: 20240101
